FAERS Safety Report 4707286-4 (Version None)
Quarter: 2005Q3

REPORT INFORMATION
  Report Type: 
  Country: None (occurrence: None)
  Receive Date: 20050701
  Receipt Date: 20050623
  Transmission Date: 20060218
  Serious: Yes (Other)
  Sender: FDA-Public Use
  Company Number: 2005089614

PATIENT
  Age: 64 Year
  Sex: Female
  Weight: 63.6 kg

DRUGS (5)
  1. SULFASALAZINE [Suspect]
     Indication: RHEUMATOID ARTHRITIS
     Dosage: 1000 MG (500 MG, 2 IN 1 D), ORAL
     Route: 048
     Dates: start: 20050330, end: 20050331
  2. PENICILLIN V [Concomitant]
  3. FLUCLOXACILLIN (FLUCLOXACILLIN) [Concomitant]
  4. MELOXICAM [Concomitant]
  5. METHOTREXATE [Concomitant]

REACTIONS (2)
  - ANGIONEUROTIC OEDEMA [None]
  - URTICARIA [None]
